FAERS Safety Report 17002084 (Version 1)
Quarter: 2019Q4

REPORT INFORMATION
  Report Type: Spontaneous
  Country: RU (occurrence: RU)
  Receive Date: 20191106
  Receipt Date: 20191106
  Transmission Date: 20200122
  Serious: Yes (Hospitalization)
  Sender: FDA-Public Use
  Company Number: RU-GE HEALTHCARE LIFE SCIENCES-2019CSU005616

PATIENT

DRUGS (3)
  1. OMNISCAN [Suspect]
     Active Substance: GADODIAMIDE
     Indication: PHYSICAL EXAMINATION OF JOINTS
     Dosage: 20 ML, SINGLE
     Route: 042
     Dates: start: 20191018, end: 20191018
  2. OMNISCAN [Suspect]
     Active Substance: GADODIAMIDE
     Indication: INJURY
  3. OMNISCAN [Suspect]
     Active Substance: GADODIAMIDE
     Indication: ARTHRALGIA

REACTIONS (5)
  - Laryngeal oedema [Recovering/Resolving]
  - Loss of consciousness [Recovering/Resolving]
  - Urinary incontinence [Recovering/Resolving]
  - Vomiting [Recovering/Resolving]
  - Blood pressure decreased [Recovering/Resolving]
